FAERS Safety Report 7925783-5 (Version None)
Quarter: 2011Q4

REPORT INFORMATION
  Report Type: 
  Country: None (occurrence: None)
  Receive Date: 20111118
  Receipt Date: 20110412
  Transmission Date: 20120403
  Serious: No
  Sender: FDA-Public Use
  Company Number: US-AMGEN-USASP2011012936

PATIENT
  Age: 63 Year
  Sex: Female

DRUGS (14)
  1. PROGESTERONE [Concomitant]
     Indication: HORMONE REPLACEMENT THERAPY
     Dosage: UNK
  2. ENBREL [Suspect]
     Indication: PRODUCT USED FOR UNKNOWN INDICATION
     Dosage: UNK
     Dates: end: 20110201
  3. HUMIRA [Concomitant]
     Indication: RHEUMATOID ARTHRITIS
     Dosage: 40 MG, Q3WK
     Dates: start: 20110201
  4. CEFIXIME [Concomitant]
     Indication: INSOMNIA
  5. ESTRASORB [Concomitant]
     Indication: OESTROGEN REPLACEMENT THERAPY
     Dosage: UNK
  6. SIMVASTATIN [Concomitant]
     Indication: BLOOD CHOLESTEROL INCREASED
     Dosage: UNK
  7. ERGOCALCIFEROL [Concomitant]
     Dosage: UNK
  8. MULTIVITAMIN                       /00097801/ [Concomitant]
     Dosage: UNK
  9. CEFIXIME [Concomitant]
     Indication: FIBROMYALGIA
     Dosage: UNK
  10. GOLD [Concomitant]
     Dosage: UNK
  11. CALCIUM [Concomitant]
     Dosage: UNK
  12. LEVOTHYROXINE SODIUM [Concomitant]
     Indication: THYROIDECTOMY
     Dosage: UNK
  13. MILNACIPRAN [Concomitant]
     Indication: FIBROMYALGIA
     Dosage: UNK
  14. LEFLUNOMIDE [Concomitant]
     Indication: RHEUMATOID ARTHRITIS
     Dosage: UNK

REACTIONS (3)
  - RASH [None]
  - HOT FLUSH [None]
  - ERYTHEMA [None]
